FAERS Safety Report 6817699-2 (Version None)
Quarter: 2010Q3

REPORT INFORMATION
  Report Type: 
  Country: None (occurrence: None)
  Receive Date: 20100706
  Receipt Date: 20100628
  Transmission Date: 20110219
  Serious: Yes (Hospitalization)
  Sender: FDA-Public Use
  Company Number: FR-PFIZER INC-2010079972

PATIENT
  Age: 51 Year
  Sex: Male

DRUGS (6)
  1. AMLOR [Suspect]
     Dosage: 5 MG, 2X/DAY
     Route: 048
  2. APROVEL [Suspect]
     Indication: HYPERTENSION
     Dosage: 300 MG, 1X/DAY
     Route: 048
  3. ALLOPURINOL [Suspect]
     Dosage: 300 MG, 1X/DAY
     Route: 048
  4. SPECIAFOLDINE [Suspect]
     Dosage: 5 MG, 1X/DAY
     Route: 048
  5. DAFALGAN [Concomitant]
     Dosage: UNK
  6. DI-ANTALVIC [Concomitant]
     Dosage: UNK

REACTIONS (2)
  - HYPERKALAEMIA [None]
  - RENAL FAILURE ACUTE [None]
